FAERS Safety Report 7881190-5 (Version None)
Quarter: 2011Q4

REPORT INFORMATION
  Report Type: 
  Country: None (occurrence: None)
  Receive Date: 20111101
  Receipt Date: 20110525
  Transmission Date: 20120403
  Serious: Yes (Hospitalization)
  Sender: FDA-Public Use
  Company Number: US-AMGEN-USASP2011020279

PATIENT
  Age: 58 Year
  Sex: Female
  Weight: 67.12 kg

DRUGS (7)
  1. XANAX [Concomitant]
  2. ALLEGRA [Concomitant]
  3. ENBREL [Suspect]
     Indication: PSORIATIC ARTHROPATHY
     Dosage: 50 MG, QWK
     Route: 058
     Dates: start: 20060701, end: 20110415
  4. SIMVASTATIN [Concomitant]
  5. ENBREL [Suspect]
     Indication: PSORIASIS
  6. CHANTIX [Concomitant]
  7. CELEBREX [Concomitant]

REACTIONS (5)
  - INTERVERTEBRAL DISC DISORDER [None]
  - ARTHROPATHY [None]
  - BACK PAIN [None]
  - PSORIASIS [None]
  - BONE ABSCESS [None]
